FAERS Safety Report 22374743 (Version 1)
Quarter: 2023Q2

REPORT INFORMATION
  Report Type: Spontaneous
  Country: ZA (occurrence: ZA)
  Receive Date: 20230526
  Receipt Date: 20230526
  Transmission Date: 20230722
  Serious: Yes (Life-Threatening, Hospitalization, Other)
  Sender: FDA-Public Use
  Company Number: ZA-ANIPHARMA-2023-ZA-000006

PATIENT
  Age: 69 Year
  Sex: Female

DRUGS (10)
  1. ANASTROZOLE [Suspect]
     Active Substance: ANASTROZOLE
     Indication: Breast cancer
  2. SIMVASTATIN [Concomitant]
     Active Substance: SIMVASTATIN
  3. FENTANYL [Concomitant]
     Active Substance: FENTANYL
     Dosage: 200 MICROGRAM ONCE
  4. PROPOFOL [Concomitant]
     Active Substance: PROPOFOL
     Dosage: 60 MG ONCE
  5. ROCURONIUM [Concomitant]
     Active Substance: ROCURONIUM BROMIDE
     Dosage: 30 MG ONCE
  6. KETAMINE [Concomitant]
     Active Substance: KETAMINE
     Dosage: 15 MG ONCE
  7. ACETAMINOPHEN [Concomitant]
     Active Substance: ACETAMINOPHEN
     Dosage: 1 GRAM ONCE
  8. MORPHINE [Concomitant]
     Active Substance: MORPHINE
     Dosage: 4 MG ONCE
  9. AMLODIPINE [Concomitant]
     Active Substance: AMLODIPINE BESYLATE
  10. METFORMIN [Concomitant]
     Active Substance: METFORMIN HYDROCHLORIDE

REACTIONS (1)
  - Stress cardiomyopathy [Recovered/Resolved]
